FAERS Safety Report 15130436 (Version 4)
Quarter: 2020Q2

REPORT INFORMATION
  Report Type: Report from Study
  Country: None (occurrence: GB)
  Receive Date: 20180711
  Receipt Date: 20200509
  Transmission Date: 20200713
  Serious: Yes (Hospitalization, Other)
  Sender: FDA-Public Use
  Company Number: GB-ABBVIE-18P-167-2291985-00

PATIENT
  Age: 16 Year
  Sex: Male

DRUGS (21)
  1. PREDNISOLONE. [Concomitant]
     Active Substance: PREDNISOLONE
     Dosage: IN THE MORNING
     Route: 048
     Dates: start: 20171211
  2. CIPROFLOXACIN. [Concomitant]
     Active Substance: CIPROFLOXACIN
     Indication: CROHN^S DISEASE
     Route: 048
     Dates: start: 20170810, end: 20170817
  3. HUMIRA [Suspect]
     Active Substance: ADALIMUMAB
     Route: 058
     Dates: start: 20170810, end: 20171202
  4. METHOTREXATE. [Suspect]
     Active Substance: METHOTREXATE
     Route: 058
     Dates: start: 20170810, end: 20180121
  5. PREDNISOLONE. [Concomitant]
     Active Substance: PREDNISOLONE
     Route: 048
     Dates: start: 20170809, end: 20171204
  6. OMEPRAZOLE. [Concomitant]
     Active Substance: OMEPRAZOLE
     Indication: PROPHYLAXIS
     Route: 048
     Dates: start: 20171109, end: 20171204
  7. DERMOL 500 LOTION [Concomitant]
     Indication: DRY SKIN PROPHYLAXIS
     Dosage: APPLY SMALL AMOUNTS TO AFFECTED AREAS
     Route: 061
     Dates: start: 20141104
  8. METHOTREXATE. [Suspect]
     Active Substance: METHOTREXATE
     Route: 048
     Dates: start: 20180122, end: 20180220
  9. PREDNISOLONE. [Concomitant]
     Active Substance: PREDNISOLONE
     Indication: CROHN^S DISEASE
     Route: 048
     Dates: start: 20141103, end: 20150101
  10. PREDNISOLONE. [Concomitant]
     Active Substance: PREDNISOLONE
     Indication: INFLAMMATION
     Route: 048
     Dates: start: 20150805, end: 20151020
  11. PREDNISOLONE. [Concomitant]
     Active Substance: PREDNISOLONE
     Route: 048
     Dates: start: 20170207, end: 20170303
  12. OMEPRAZOLE. [Concomitant]
     Active Substance: OMEPRAZOLE
     Indication: PROPHYLAXIS
     Route: 048
     Dates: start: 20171213
  13. CIPROFLOXACIN. [Concomitant]
     Active Substance: CIPROFLOXACIN
     Indication: CROHN^S DISEASE
     Route: 041
     Dates: start: 20171204, end: 20171211
  14. CIPROFLOXACIN. [Concomitant]
     Active Substance: CIPROFLOXACIN
     Indication: PYREXIA
     Route: 048
     Dates: start: 20171211, end: 20171217
  15. COTRIMOXAZOLE [Concomitant]
     Active Substance: SULFAMETHOXAZOLE\TRIMETHOPRIM
     Indication: PROPHYLAXIS
  16. HUMIRA [Suspect]
     Active Substance: ADALIMUMAB
     Indication: CROHN^S DISEASE
     Route: 058
     Dates: start: 20170209, end: 20170809
  17. VEDOLIZUMAB [Concomitant]
     Active Substance: VEDOLIZUMAB
     Indication: CROHN^S DISEASE
     Dosage: 4-8 WEEKLY DEPENDING ON BLOOD LEVELS
     Route: 041
     Dates: start: 20171212
  18. COTRIMOXAZOLE [Concomitant]
     Active Substance: SULFAMETHOXAZOLE\TRIMETHOPRIM
     Indication: PROPHYLAXIS
     Dosage: MONDAYS, WEDNESDAYS, AND FRIDAYS
     Route: 048
     Dates: start: 20171208, end: 20171222
  19. METHOTREXATE. [Suspect]
     Active Substance: METHOTREXATE
     Indication: CROHN^S DISEASE
     Route: 058
     Dates: start: 20170617, end: 20170809
  20. METHOTREXATE. [Suspect]
     Active Substance: METHOTREXATE
     Route: 048
     Dates: start: 20180720, end: 201809
  21. FOLIC ACID. [Concomitant]
     Active Substance: FOLIC ACID
     Indication: VITAMIN SUPPLEMENTATION
     Route: 048
     Dates: start: 20170618, end: 20180930

REACTIONS (2)
  - Tenosynovitis [Not Recovered/Not Resolved]
  - Arthropathy [Not Recovered/Not Resolved]

NARRATIVE: CASE EVENT DATE: 20180224
